FAERS Safety Report 11700418 (Version 1)
Quarter: 2015Q4

REPORT INFORMATION
  Report Type: Report from Study
  Country: RU (occurrence: RU)
  Receive Date: 20151105
  Receipt Date: 20151105
  Transmission Date: 20160304
  Serious: Yes (Other)
  Sender: FDA-Public Use
  Company Number: PHHY2013RU081975

PATIENT
  Age: 27 Year
  Sex: Female

DRUGS (1)
  1. AFINITOR [Suspect]
     Active Substance: EVEROLIMUS
     Indication: RENAL CELL CARCINOMA
     Route: 065

REACTIONS (4)
  - Pain [Recovering/Resolving]
  - Oncologic complication [Recovering/Resolving]
  - Anaemia [Recovering/Resolving]
  - Hydrothorax [Recovered/Resolved]

NARRATIVE: CASE EVENT DATE: 20130117
